FAERS Safety Report 4519323-0 (Version None)
Quarter: 2004Q4

REPORT INFORMATION
  Report Type: 
  Country: None (occurrence: None)
  Receive Date: 20041206
  Receipt Date: 20041129
  Transmission Date: 20050328
  Serious: Yes (Life-Threatening, Hospitalization)
  Sender: FDA-Public Use
  Company Number: FI-GLAXOSMITHKLINE-B0358858A

PATIENT
  Age: 60 Year
  Sex: Female

DRUGS (8)
  1. ZINACEF [Suspect]
     Indication: PROPHYLAXIS
     Dosage: 750MG SINGLE DOSE
     Route: 042
     Dates: start: 20041123, end: 20041123
  2. FENTANYL [Concomitant]
     Route: 042
  3. MIDAZOLAM HCL [Concomitant]
     Route: 042
  4. LIDOCAIN HYDROCHLORIDE [Concomitant]
     Route: 042
  5. PROPOFOL [Concomitant]
     Route: 042
  6. ESMERON [Concomitant]
     Route: 042
  7. EFEDRIN [Concomitant]
     Route: 042
  8. EFFORTIL [Concomitant]
     Route: 042

REACTIONS (5)
  - ADVERSE DRUG REACTION [None]
  - BLOOD PRESSURE DECREASED [None]
  - HYPOXIA [None]
  - TACHYCARDIA [None]
  - URTICARIA GENERALISED [None]
